FAERS Safety Report 10654448 (Version 3)
Quarter: 2015Q1

REPORT INFORMATION
  Report Type: Spontaneous
  Country: JP (occurrence: JP)
  Receive Date: 20141216
  Receipt Date: 20150121
  Transmission Date: 20150720
  Serious: Yes (Death, Other)
  Sender: FDA-Public Use
  Company Number: PHHY2014JP156287

PATIENT
  Age: 80 Year
  Sex: Male

DRUGS (2)
  1. NEORAL [Suspect]
     Active Substance: CYCLOSPORINE
     Indication: APLASTIC ANAEMIA
     Route: 048
  2. SANDIMMUNE [Concomitant]
     Active Substance: CYCLOSPORINE
     Indication: PRODUCT USED FOR UNKNOWN INDICATION
     Route: 065

REACTIONS (5)
  - Infection [Fatal]
  - Condition aggravated [Unknown]
  - Off label use [Unknown]
  - Aplastic anaemia [Unknown]
  - Oral administration complication [Not Recovered/Not Resolved]

NARRATIVE: CASE EVENT DATE: 20141117
